FAERS Safety Report 4697197-5 (Version None)
Quarter: 2005Q2

REPORT INFORMATION
  Report Type: 
  Country: None (occurrence: None)
  Receive Date: 20050621
  Receipt Date: 20050621
  Transmission Date: 20051028
  Serious: No
  Sender: FDA-Public Use
  Company Number: None

PATIENT
  Age: 85 Year
  Sex: Female
  Weight: 77.8 kg

DRUGS (4)
  1. LANSOPRAZOLE [Suspect]
     Indication: PROPHYLAXIS
     Dosage: 30MG   DAILY   ORAL
     Route: 048
     Dates: start: 20050527, end: 20050620
  2. PERCOCET -ACETAMINOPHEN- [Concomitant]
  3. VANCOMYCIN [Concomitant]
  4. LEVOTHYROXINE [Concomitant]

REACTIONS (2)
  - INTERNATIONAL NORMALISED RATIO INCREASED [None]
  - PROTHROMBIN TIME PROLONGED [None]
